FAERS Safety Report 5175295-X (Version None)
Quarter: 2006Q4

REPORT INFORMATION
  Report Type: 
  Country: None (occurrence: None)
  Receive Date: 20061211
  Receipt Date: 20061211
  Transmission Date: 20070319
  Serious: Yes (Other)
  Sender: FDA-Public Use
  Company Number: None

PATIENT
  Sex: Male
  Weight: 95.2554 kg

DRUGS (2)
  1. PRAVASTATIN SODIUM [Suspect]
     Indication: LOW DENSITY LIPOPROTEIN INCREASED
     Dosage: 40 MG ONCE PER DAY PO
     Route: 048
     Dates: start: 20050606, end: 20061014
  2. NIACIN FLUSH FREE 500 MG CVS [Suspect]
     Indication: LOW DENSITY LIPOPROTEIN INCREASED
     Dosage: 500 MG ONCE PER DAY PO
     Route: 048
     Dates: start: 20050810, end: 20061014

REACTIONS (2)
  - MYOPATHY [None]
  - RHABDOMYOLYSIS [None]
